FAERS Safety Report 10754325 (Version 2)
Quarter: 2015Q2

REPORT INFORMATION
  Report Type: Spontaneous
  Country: US (occurrence: US)
  Receive Date: 20150202
  Receipt Date: 20150601
  Transmission Date: 20150821
  Serious: No
  Sender: FDA-Public Use
  Company Number: US-CELGENEUS-USA-2014126241

PATIENT
  Age: 33 Year
  Sex: Male

DRUGS (1)
  1. OTEZLA [Suspect]
     Active Substance: APREMILAST
     Indication: PSORIATIC ARTHROPATHY
     Dosage: 60 MILLIGRAM
     Route: 048
     Dates: start: 20141114

REACTIONS (17)
  - Diarrhoea [Recovered/Resolved]
  - Libido increased [Recovered/Resolved]
  - Anxiety [Recovered/Resolved]
  - Sleep disorder [Recovering/Resolving]
  - Cough [Recovered/Resolved]
  - Hyperchlorhydria [Recovered/Resolved]
  - Myalgia [Recovered/Resolved]
  - Gastrointestinal disorder [Recovered/Resolved]
  - Weight decreased [Recovered/Resolved]
  - Tension headache [Recovered/Resolved]
  - Concussion [Unknown]
  - Depression [Not Recovered/Not Resolved]
  - Nausea [Recovered/Resolved]
  - Lethargy [Recovering/Resolving]
  - Tension headache [Recovered/Resolved]
  - Decreased appetite [Recovering/Resolving]
  - Chills [Not Recovered/Not Resolved]

NARRATIVE: CASE EVENT DATE: 20141114
